FAERS Safety Report 16832427 (Version 1)
Quarter: 2019Q3

REPORT INFORMATION
  Report Type: Spontaneous
  Country: US (occurrence: US)
  Receive Date: 20190730
  Receipt Date: 20190730
  Transmission Date: 20191005
  Serious: No
  Sender: FDA-Public Use
  Company Number: None

PATIENT
  Age: 55 Year
  Sex: Female

DRUGS (2)
  1. ONDANSETRON [Concomitant]
     Active Substance: ONDANSETRON
  2. TEMOZOLOMIDE CAP [Suspect]
     Active Substance: TEMOZOLOMIDE
     Indication: BRAIN NEOPLASM MALIGNANT
     Route: 048
     Dates: start: 20180424

REACTIONS (6)
  - Urticaria [None]
  - Suspected product contamination [None]
  - Swelling face [None]
  - Recalled product administered [None]
  - Recalled product [None]
  - Peripheral swelling [None]

NARRATIVE: CASE EVENT DATE: 20190727
